FAERS Safety Report 6161785-X (Version None)
Quarter: 2009Q2

REPORT INFORMATION
  Report Type: 
  Country: None (occurrence: None)
  Receive Date: 20090421
  Receipt Date: 20090415
  Transmission Date: 20091009
  Serious: No
  Sender: FDA-Public Use
  Company Number: BR-ROCHE-570006

PATIENT
  Age: 22 Year
  Sex: Female

DRUGS (2)
  1. ROACUTAN [Suspect]
     Indication: DRUG USE FOR UNKNOWN INDICATION
     Route: 048
  2. 1 CONCOMITANT DRUG [Concomitant]
     Indication: CONTRACEPTION
     Route: 048
     Dates: end: 20080101

REACTIONS (2)
  - NO ADVERSE EVENT [None]
  - PREGNANCY [None]
